FAERS Safety Report 5635030-5 (Version None)
Quarter: 2008Q1

REPORT INFORMATION
  Report Type: 
  Country: None (occurrence: None)
  Receive Date: 20080222
  Receipt Date: 20080207
  Transmission Date: 20080703
  Serious: Yes (Death)
  Sender: FDA-Public Use
  Company Number: FR-BAYER-200813325GPV

PATIENT

DRUGS (3)
  1. FLUDARABINE [Suspect]
     Indication: ALLOGENIC BONE MARROW TRANSPLANTATION THERAPY
     Dosage: TOTAL DAILY DOSE: 30 MG/M2
     Route: 042
  2. TREOSULFAN [Suspect]
     Indication: ALLOGENIC BONE MARROW TRANSPLANTATION THERAPY
     Dosage: TOTAL DAILY DOSE: 12000 MG/M2
     Route: 042
  3. ANTITHYMOCYTE GLOBULIN [Suspect]
     Indication: ALLOGENIC BONE MARROW TRANSPLANTATION THERAPY
     Dosage: TOTAL DAILY DOSE: 2.5 MG/KG
     Route: 042

REACTIONS (1)
  - COMPLICATIONS OF BONE MARROW TRANSPLANT [None]
